FAERS Safety Report 9669746 (Version 2)
Quarter: 2013Q4

REPORT INFORMATION
  Report Type: Spontaneous
  Country: CA (occurrence: CA)
  Receive Date: 20131105
  Receipt Date: 20131217
  Transmission Date: 20140711
  Serious: Yes (Hospitalization)
  Sender: FDA-Public Use
  Company Number: CA-ELI_LILLY_AND_COMPANY-CA201310007329

PATIENT
  Age: 90 Year
  Sex: Female

DRUGS (2)
  1. CYMBALTA [Suspect]
     Indication: PAIN
     Dosage: 30 MG, EACH MORNING
     Route: 048
     Dates: start: 20130116, end: 20130124
  2. BACLOFEN [Concomitant]
     Indication: PRODUCT USED FOR UNKNOWN INDICATION
     Dosage: 10 MG, PRN
     Route: 048

REACTIONS (5)
  - Intracranial haematoma [Recovered/Resolved]
  - Hyponatraemia [Recovered/Resolved]
  - Muscle spasms [Recovered/Resolved]
  - Neck pain [Recovered/Resolved]
  - Syncope [Recovered/Resolved]
